FAERS Safety Report 4597685-6 (Version None)
Quarter: 2005Q1

REPORT INFORMATION
  Report Type: 
  Country: None (occurrence: None)
  Receive Date: 20050303
  Receipt Date: 20050223
  Transmission Date: 20050727
  Serious: Yes (Other)
  Sender: FDA-Public Use
  Company Number: US-JNJFOC-20050101101

PATIENT
  Sex: Female
  Weight: 51.26 kg

DRUGS (8)
  1. TOPAMAX [Suspect]
     Dosage: UP TO 200 MG DAILY
     Route: 049
  2. TOPAMAX [Suspect]
     Indication: MIGRAINE PROPHYLAXIS
     Route: 049
  3. FIORCET [Concomitant]
  4. FIORCET [Concomitant]
  5. FIORCET [Concomitant]
     Indication: HEADACHE
  6. ESTRADIOL [Concomitant]
     Indication: HORMONE REPLACEMENT THERAPY
  7. PRIMEDONE [Concomitant]
     Indication: ESSENTIAL TREMOR
  8. ^VERA^ [Concomitant]
     Indication: PALPITATIONS

REACTIONS (8)
  - ALOPECIA [None]
  - AMNESIA [None]
  - ANAEMIA [None]
  - ANOREXIA [None]
  - CONFUSIONAL STATE [None]
  - HAIR TEXTURE ABNORMAL [None]
  - MALNUTRITION [None]
  - WEIGHT DECREASED [None]
